FAERS Safety Report 20077318 (Version 1)
Quarter: 2021Q4

REPORT INFORMATION
  Report Type: Spontaneous
  Country: US (occurrence: US)
  Receive Date: 20211116
  Receipt Date: 20211116
  Transmission Date: 20220303
  Serious: No
  Sender: FDA-Public Use
  Company Number: US-KYOWAKIRIN-2021BKK018909

PATIENT

DRUGS (2)
  1. SANCUSO [Suspect]
     Active Substance: GRANISETRON
     Indication: Impaired gastric emptying
     Dosage: FIRST PATCH
     Route: 061
     Dates: start: 20211028, end: 20211028
  2. SANCUSO [Suspect]
     Active Substance: GRANISETRON
     Dosage: SECOND PATCH
     Route: 061
     Dates: start: 20211029

REACTIONS (3)
  - Product adhesion issue [Unknown]
  - Wrong technique in product usage process [Unknown]
  - Product use in unapproved indication [Unknown]

NARRATIVE: CASE EVENT DATE: 20211028
